FAERS Safety Report 4474597-X (Version None)
Quarter: 2004Q4

REPORT INFORMATION
  Report Type: 
  Country: None (occurrence: None)
  Receive Date: 20041008
  Receipt Date: 20040920
  Transmission Date: 20050328
  Serious: Yes (Death, Life-Threatening)
  Sender: FDA-Public Use
  Company Number: WAES 0409FIN00017

PATIENT
  Age: 20 Year
  Sex: Female

DRUGS (8)
  1. CANCIDAS [Suspect]
     Indication: SYSTEMIC CANDIDA
     Dosage: 35 MG DAILY, IV
     Route: 042
     Dates: start: 20031006, end: 20031017
  2. CANCIDAS [Suspect]
     Indication: SYSTEMIC CANDIDA
     Dosage: 35 MG DAILY, IV
     Route: 042
     Dates: start: 20031018, end: 20031114
  3. VALPROATE SODIUM [Suspect]
     Indication: STATUS EPILEPTICUS
  4. CLONAZEPAM [Suspect]
     Indication: STATUS EPILEPTICUS
  5. PHENYTOIN [Suspect]
     Indication: STATUS EPILEPTICUS
  6. AMPHOTERICIN B [Suspect]
     Indication: SYSTEMIC CANDIDA
     Dates: start: 20031006, end: 20031014
  7. ANTIMICROBIAL [Concomitant]
  8. VANCOMYCIN [Concomitant]

REACTIONS (6)
  - ACUTE RESPIRATORY DISTRESS SYNDROME [None]
  - DRUG RESISTANCE [None]
  - HEPATIC NECROSIS [None]
  - MULTI-ORGAN FAILURE [None]
  - PNEUMONIA BACTERIAL [None]
  - PNEUMONIA FUNGAL [None]
